FAERS Safety Report 23998669 (Version 3)
Quarter: 2025Q1

REPORT INFORMATION
  Report Type: Report from Study
  Country: CA (occurrence: CA)
  Receive Date: 20240621
  Receipt Date: 20250228
  Transmission Date: 20250409
  Serious: Yes (Other)
  Sender: TAKEDA
  Company Number: CA-TAKEDA-2024TUS060226

PATIENT
  Sex: Male

DRUGS (3)
  1. VEDOLIZUMAB [Suspect]
     Active Substance: VEDOLIZUMAB
     Indication: Crohn^s disease
  2. VEDOLIZUMAB [Suspect]
     Active Substance: VEDOLIZUMAB
     Indication: Crohn^s disease
     Dosage: 108 MILLIGRAM, Q2WEEKS
     Dates: start: 20230321
  3. MESALAMINE [Concomitant]
     Active Substance: MESALAMINE

REACTIONS (12)
  - Soft tissue necrosis [Unknown]
  - Sepsis [Unknown]
  - Frequent bowel movements [Not Recovered/Not Resolved]
  - Illness [Unknown]
  - Bowel movement irregularity [Unknown]
  - Discoloured vomit [Unknown]
  - Soft tissue inflammation [Unknown]
  - Malaise [Unknown]
  - Diarrhoea [Unknown]
  - Abdominal mass [Unknown]
  - Vomiting [Unknown]
  - Anal fissure [Unknown]
